FAERS Safety Report 6483016-3 (Version None)
Quarter: 2009Q4

REPORT INFORMATION
  Report Type: 
  Country: None (occurrence: None)
  Receive Date: 20091123
  Receipt Date: 20090722
  Transmission Date: 20100525
  Serious: No
  Sender: FDA-Public Use
  Company Number: 8049344

PATIENT
  Age: 39 Year
  Sex: Male
  Weight: 117.9 kg

DRUGS (7)
  1. CIMZIA [Suspect]
     Indication: COLITIS ULCERATIVE
     Dosage: 400 MG SC
     Route: 058
  2. CIMZIA [Suspect]
     Indication: CROHN'S DISEASE
     Dosage: 400 MG SC
     Route: 058
  3. COREG [Concomitant]
  4. NORVASC [Concomitant]
  5. WATER PILL [Concomitant]
  6. CYMBALTA [Concomitant]
  7. PERCOCET [Concomitant]

REACTIONS (5)
  - BLOOD GROWTH HORMONE DECREASED [None]
  - BLOOD TESTOSTERONE DECREASED [None]
  - CROHN'S DISEASE [None]
  - DRUG ADMINISTRATION ERROR [None]
  - PAIN IN EXTREMITY [None]
